FAERS Safety Report 12398457 (Version 2)
Quarter: 2016Q4

REPORT INFORMATION
  Report Type: Spontaneous
  Country: US (occurrence: US)
  Receive Date: 20160524
  Receipt Date: 20161115
  Transmission Date: 20170207
  Serious: No
  Sender: FDA-Public Use
  Company Number: US-ACTELION-A-US2016-136577

PATIENT
  Age: 74 Year
  Sex: Female

DRUGS (14)
  1. OMEPRAZOLE. [Concomitant]
     Active Substance: OMEPRAZOLE
  2. FISH OIL W/VITAMIN D NOS [Concomitant]
  3. VITAMIN E [Concomitant]
     Active Substance: .ALPHA.-TOCOPHEROL
  4. VITAMIN D3 [Concomitant]
     Active Substance: CHOLECALCIFEROL
  5. LOSARTAN AND HYDROCHLOROTHIAZIDE [Concomitant]
     Active Substance: HYDROCHLOROTHIAZIDE\LOSARTAN POTASSIUM
  6. AMLODIPINE BESILATE W/ATORVASTATIN CALCIUM [Concomitant]
  7. VITAMIN A AND D [Concomitant]
     Active Substance: LANOLIN\PETROLATUM
  8. BIOTIN [Concomitant]
     Active Substance: BIOTIN
  9. VALCHLOR [Suspect]
     Active Substance: MECHLORETHAMINE
     Indication: MYCOSIS FUNGOIDES
     Dosage: UNK UNK, QD
     Route: 061
     Dates: start: 20160113
  10. METFORMIN [Concomitant]
     Active Substance: METFORMIN HYDROCHLORIDE
  11. ADVIL [Concomitant]
     Active Substance: IBUPROFEN
  12. HYDROCHLOROTHIAZIDE. [Concomitant]
     Active Substance: HYDROCHLOROTHIAZIDE
  13. MACROBID [Concomitant]
     Active Substance: NITROFURANTOIN\NITROFURANTOIN MONOHYDRATE
  14. MULTIVITAMINS [Concomitant]
     Active Substance: VITAMINS

REACTIONS (4)
  - Application site vesicles [Not Recovered/Not Resolved]
  - Application site erosion [Unknown]
  - Application site pain [Not Recovered/Not Resolved]
  - Application site irritation [Not Recovered/Not Resolved]
